FAERS Safety Report 8851062 (Version 1)
Quarter: 2012Q4

REPORT INFORMATION
  Report Type: 
  Country: GB (occurrence: GB)
  Receive Date: 20121019
  Receipt Date: 20121019
  Transmission Date: 20130627
  Serious: Yes (Hospitalization)
  Sender: FDA-Public Use
  Company Number: GB-009507513-1208GBR006245

PATIENT
  Age: 80 Year
  Sex: Male

DRUGS (10)
  1. ZISPIN SOLTAB [Suspect]
     Indication: SLEEP DISORDER
     Dosage: 60 mg, UNK
     Route: 048
  2. ZISPIN SOLTAB [Suspect]
     Dosage: 45 mg, hs
  3. OLANZAPINE [Concomitant]
     Dosage: 5 mg, qid
     Dates: start: 2012
  4. OXAZEPAM [Concomitant]
     Dosage: 10 mg, bid
  5. AMLODIPINE [Concomitant]
     Dosage: 5 mg, qid
  6. ISOSORBIDE MONONITRATE [Concomitant]
     Dosage: 10 mg, bid
  7. MEBEVERINE HYDROCHLORIDE [Concomitant]
     Dosage: 135 mg, tid
  8. TIOTROPIUM BROMIDE [Concomitant]
     Dosage: 18 Microgram, 1 puff once daily
     Route: 055
  9. ALBUTEROL [Concomitant]
     Dosage: 2 puffs
  10. SENNA [Concomitant]
     Dosage: 2 prn

REACTIONS (5)
  - Depression [Not Recovered/Not Resolved]
  - Psychotic behaviour [Not Recovered/Not Resolved]
  - Depressed mood [Unknown]
  - Suicidal ideation [Unknown]
  - Overdose [Unknown]
